FAERS Safety Report 9422508 (Version 1)
Quarter: 2013Q3

REPORT INFORMATION
  Report Type: Spontaneous
  Country: US (occurrence: None)
  Receive Date: 20130725
  Receipt Date: 20130725
  Transmission Date: 20140515
  Serious: Yes (Hospitalization)
  Sender: FDA-Public Use
  Company Number: None

PATIENT
  Age: 35 Year
  Sex: Female

DRUGS (16)
  1. SUTENT [Suspect]
     Indication: RENAL CELL CARCINOMA
     Dosage: 4 WKS ON 2 WEEKS OFF
     Route: 048
  2. SRONYX [Suspect]
  3. SYNTHROID [Suspect]
  4. BUSPIRONE [Suspect]
  5. HYDROCO/APAP [Suspect]
  6. GABAPENTIN [Suspect]
  7. BENADRYL [Concomitant]
  8. MULTI [Concomitant]
  9. FISH OIL [Concomitant]
  10. MAGNESIUM [Concomitant]
  11. VITAMIN D-3 [Concomitant]
  12. NEXAVAR [Concomitant]
  13. LEXAVAR [Concomitant]
  14. PAXIL [Concomitant]
  15. AMBIEN [Concomitant]
  16. OMEGA-3 [Concomitant]

REACTIONS (1)
  - Cerebrovascular accident [None]
